FAERS Safety Report 4817068-0 (Version None)
Quarter: 2005Q4

REPORT INFORMATION
  Report Type: 
  Country: None (occurrence: None)
  Receive Date: 20051018
  Receipt Date: 20040909
  Transmission Date: 20060501
  Serious: Yes (Other)
  Sender: FDA-Public Use
  Company Number: 24974

PATIENT
  Age: 21 Year
  Sex: Female

DRUGS (2)
  1. METROGEL-VAGINAL [Suspect]
     Indication: VAGINITIS BACTERIAL
     Dosage: 37.5 MG, 1 IN  1 DAY(S), VAGINAL
     Route: 067
     Dates: start: 20040822, end: 20040826
  2. VITAMIN AND MINERAL PRENATAL SUPPLEMENT W/ FOLIC ACID CAP [Concomitant]

REACTIONS (4)
  - ABDOMINAL PAIN [None]
  - NAUSEA [None]
  - VAGINAL HAEMORRHAGE [None]
  - VOMITING [None]
